FAERS Safety Report 24203134 (Version 1)
Quarter: 2024Q3

REPORT INFORMATION
  Report Type: Report from Study
  Country: US (occurrence: US)
  Receive Date: 20240813
  Receipt Date: 20240813
  Transmission Date: 20241016
  Serious: No
  Sender: ROCHE
  Company Number: US-ROCHE-10000006384

PATIENT
  Age: 37 Year
  Sex: Male

DRUGS (9)
  1. OCREVUS [Suspect]
     Active Substance: OCRELIZUMAB
     Indication: Multiple sclerosis
     Dosage: ON 14/FEB/2023, LAST DOSE OF INFUSION RECEIVED. SUBSEQUENT DOSE, 600 MG, INTRAVENOUS , EVERY 6 MONTH
     Route: 042
  2. ALBUTEROL SULFATE [Concomitant]
     Active Substance: ALBUTEROL SULFATE
     Dosage: 1, 2 PUFF VIA INHALTION
  3. ASCORBIC ACID [Concomitant]
     Active Substance: ASCORBIC ACID
     Route: 048
  4. BACLOFEN [Concomitant]
     Active Substance: BACLOFEN
     Route: 048
  5. CALCIUM CARBONATE\CHOLECALCIFEROL [Concomitant]
     Active Substance: CALCIUM CARBONATE\CHOLECALCIFEROL
     Dosage: 250 MCG
     Route: 048
  6. GLUCOSAMINE [Concomitant]
     Active Substance: GLUCOSAMINE
     Dosage: 2 TABLETS DAILY
  7. HYDROXYZINE HYDROCHLORIDE [Concomitant]
     Active Substance: HYDROXYZINE HYDROCHLORIDE
     Route: 048
  8. MELOXICAM [Concomitant]
     Active Substance: MELOXICAM
  9. OMEPRAZOLE [Concomitant]
     Active Substance: OMEPRAZOLE
     Route: 048

REACTIONS (6)
  - Muscle spasticity [Unknown]
  - Brain fog [Unknown]
  - Vertigo [Unknown]
  - COVID-19 [Unknown]
  - Dizziness [Unknown]
  - Arthralgia [Unknown]
